FAERS Safety Report 18915549 (Version 1)
Quarter: 2021Q1

REPORT INFORMATION
  Report Type: Spontaneous
  Country: US (occurrence: US)
  Receive Date: 20210219
  Receipt Date: 20210219
  Transmission Date: 20210420
  Serious: Yes (Hospitalization)
  Sender: FDA-Public Use
  Company Number: None

PATIENT
  Age: 25 Year
  Sex: Male
  Weight: 60.6 kg

DRUGS (3)
  1. METHOTREXATE. [Suspect]
     Active Substance: METHOTREXATE
     Dates: end: 20210202
  2. ONCASPAR [Concomitant]
     Active Substance: PEGASPARGASE
     Dates: end: 20200208
  3. VINCRISTINE SULFATE. [Concomitant]
     Active Substance: VINCRISTINE SULFATE
     Dates: end: 20210204

REACTIONS (3)
  - Febrile neutropenia [None]
  - Pleural effusion [None]
  - Pneumothorax [None]

NARRATIVE: CASE EVENT DATE: 20210210
